FAERS Safety Report 8418527 (Version 7)
Quarter: 2012Q4

REPORT INFORMATION
  Report Type: 
  Country: JP (occurrence: JP)
  Receive Date: 20120221
  Receipt Date: 20121126
  Transmission Date: 20130627
  Serious: Yes (Hospitalization)
  Sender: FDA-Public Use
  Company Number: JP-ROCHE-1040410

PATIENT
  Age: 38 Year
  Sex: Female
  Weight: 47 kg

DRUGS (4)
  1. OMALIZUMAB [Suspect]
     Indication: ASTHMA
     Route: 058
     Dates: start: 20120209, end: 20120209
  2. SYMBICORT [Concomitant]
  3. MUCOSTA [Concomitant]
  4. RINDERON [Concomitant]

REACTIONS (2)
  - Anaphylactic reaction [Recovered/Resolved]
  - Asthma [Recovered/Resolved]
